FAERS Safety Report 5699059-3 (Version None)
Quarter: 2008Q2

REPORT INFORMATION
  Report Type: 
  Country: None (occurrence: None)
  Receive Date: 20080408
  Receipt Date: 20061023
  Transmission Date: 20081010
  Serious: No
  Sender: FDA-Public Use
  Company Number: US-BAYER-US-2006-032312

PATIENT
  Age: 30 Year
  Sex: Female

DRUGS (5)
  1. ULTRAVIST 300 [Suspect]
     Indication: COMPUTERISED TOMOGRAM ABDOMEN
     Dosage: UNIT DOSE: 90 ML
     Route: 042
     Dates: start: 20061019, end: 20061019
  2. EFFEXOR [Concomitant]
  3. ALLEGRA [Concomitant]
  4. LEXAPRO [Concomitant]
  5. NASACORT [Concomitant]

REACTIONS (5)
  - LACRIMATION INCREASED [None]
  - OCULAR HYPERAEMIA [None]
  - SNEEZING [None]
  - THROAT TIGHTNESS [None]
  - URTICARIA [None]
